FAERS Safety Report 8979403 (Version 2)
Quarter: 2013Q1

REPORT INFORMATION
  Report Type: Spontaneous
  Country: US (occurrence: US)
  Receive Date: 20121221
  Receipt Date: 20130205
  Transmission Date: 20140127
  Serious: Yes (Other)
  Sender: FDA-Public Use
  Company Number: US-US-EMD SERONO, INC.-7183076

PATIENT
  Age: 58 Year
  Sex: Male
  Weight: 79 kg

DRUGS (5)
  1. EGRIFTA [Suspect]
     Indication: PRODUCT USED FOR UNKNOWN INDICATION
     Dates: end: 20121001
  2. INTELENCE [Concomitant]
     Indication: HIV INFECTION
  3. ISENTRESS [Concomitant]
     Indication: HIV INFECTION
  4. PLAVIX [Concomitant]
     Indication: CORONARY ARTERY DISEASE
  5. ACYCLOVIR [Concomitant]
     Indication: PROPHYLAXIS

REACTIONS (2)
  - Pulmonary fibrosis [Recovered/Resolved]
  - Insulin-like growth factor increased [Unknown]
